FAERS Safety Report 7807930-9 (Version None)
Quarter: 2011Q4

REPORT INFORMATION
  Report Type: 
  Country: None (occurrence: None)
  Receive Date: 20111011
  Receipt Date: 20111011
  Transmission Date: 20120403
  Serious: Yes (Life-Threatening, Hospitalization, Disabling, Other)
  Sender: FDA-Public Use
  Company Number: None

PATIENT
  Age: 47 Year
  Sex: Male
  Weight: 70.306 kg

DRUGS (2)
  1. PHENYTEK [Concomitant]
  2. PHENYTEK [Suspect]
     Indication: CONVULSION
     Dosage: 400, THEN 600 ALTERNATING DAYS
     Route: 048
     Dates: start: 20110517, end: 20110606

REACTIONS (7)
  - TOXICITY TO VARIOUS AGENTS [None]
  - DIZZINESS [None]
  - PRODUCT SUBSTITUTION ISSUE [None]
  - CERVICAL VERTEBRAL FRACTURE [None]
  - LOSS OF CONSCIOUSNESS [None]
  - PRODUCT MEASURED POTENCY ISSUE [None]
  - REACTION TO DRUG EXCIPIENTS [None]
